FAERS Safety Report 10615347 (Version 3)
Quarter: 2015Q2

REPORT INFORMATION
  Report Type: Spontaneous
  Country: US (occurrence: US)
  Receive Date: 20141201
  Receipt Date: 20150526
  Transmission Date: 20150821
  Serious: Yes (Hospitalization, Other)
  Sender: FDA-Public Use
  Company Number: US-PFIZER INC-2014324961

PATIENT
  Age: 68 Year
  Sex: Female
  Weight: 77 kg

DRUGS (31)
  1. GINKO BILOBA [Concomitant]
     Active Substance: GINKGO
     Indication: CARDIOVASCULAR DISORDER
  2. COD LIVER OIL [Concomitant]
     Active Substance: COD LIVER OIL
     Dosage: UNK
     Route: 048
  3. COENZYME Q10 [Concomitant]
     Active Substance: UBIDECARENONE
     Indication: ROUTINE HEALTH MAINTENANCE
     Dosage: 200 MG, 1X/DAY
  4. GARLIC /01570501/ [Concomitant]
     Dosage: UNK
     Route: 048
  5. TURMERIC /01079602/ [Concomitant]
     Dosage: UNK
     Route: 048
  6. AROMASIN [Suspect]
     Active Substance: EXEMESTANE
     Indication: BREAST CANCER
     Dosage: 25 MG, DAILY
     Route: 048
     Dates: start: 201312
  7. ASPIRIN. [Concomitant]
     Active Substance: ASPIRIN
     Dosage: 81 MG, 1X/DAY
     Route: 048
  8. LUTEIN [Concomitant]
     Active Substance: LUTEIN
     Indication: EYE DISORDER
     Dosage: UNK
     Route: 048
  9. BILBERRY [Concomitant]
     Active Substance: BILBERRY
     Indication: EYE DISORDER
     Dosage: 1000 MG, 2X/DAY
  10. CHLORTHALIDONE. [Concomitant]
     Active Substance: CHLORTHALIDONE
     Indication: BLOOD PRESSURE ABNORMAL
     Dosage: 25 MG, 1X/DAY
     Route: 048
  11. BORAGE OIL [Concomitant]
     Active Substance: BORAGE OIL
     Indication: MENOPAUSE
     Dosage: 500 MG, 2X/DAY
  12. FISH OIL [Concomitant]
     Active Substance: FISH OIL
     Indication: ROUTINE HEALTH MAINTENANCE
     Dosage: 600 MG, UNK
  13. VITAMIN B [Concomitant]
     Active Substance: VITAMIN B
     Indication: ROUTINE HEALTH MAINTENANCE
     Dosage: 100 MG, 1X/DAY
  14. COCONUT OIL [Concomitant]
     Active Substance: COCONUT OIL
     Dosage: 2 DF (2 GELCAPS), 2X/DAY
  15. CALCIUM MAGNESIUM ZINC /01320801/ [Concomitant]
     Indication: JOINT INJURY
     Dosage: 3 DF (3 TABLETS), 1X/DAY
  16. NATURE MADE CALCIUM WITH VITAMIN D [Concomitant]
     Dosage: UNK
     Route: 048
  17. MAGNESIUM [Concomitant]
     Active Substance: MAGNESIUM
     Indication: JOINT INJURY
     Dosage: UNK
     Route: 048
  18. BIOTIN [Concomitant]
     Active Substance: BIOTIN
     Indication: SUPPLEMENTATION THERAPY
     Dosage: UNK
     Route: 048
  19. GINKO BILOBA [Concomitant]
     Active Substance: GINKGO
     Indication: MEMORY IMPAIRMENT
     Dosage: 120 MG, 1X/DAY
  20. LISINOPRIL. [Concomitant]
     Active Substance: LISINOPRIL
     Indication: BLOOD PRESSURE
     Dosage: 5 MG, 1X/DAY
     Route: 048
  21. FISH OIL [Concomitant]
     Active Substance: FISH OIL
     Indication: ROUTINE HEALTH MAINTENANCE
     Dosage: 600 MG, UNK
     Route: 048
  22. GRAPE SEED EXTRACT /01364603/ [Concomitant]
     Indication: IMMUNE SYSTEM DISORDER
     Dosage: UNK
  23. VITAMIN D3 [Concomitant]
     Active Substance: CHOLECALCIFEROL
     Indication: BONE DISORDER
     Dosage: 5000 IU, 1X/DAY
     Route: 048
  24. VITAMIN C [Concomitant]
     Active Substance: ASCORBIC ACID
     Dosage: 1000 MG, SEVERAL TABLETS A DAY
     Route: 048
  25. CRANBERRY. [Concomitant]
     Active Substance: CRANBERRY
     Indication: URINARY TRACT INFECTION
     Dosage: UNK
     Route: 048
  26. CRANBERRY WITH VITAMIN C [Concomitant]
     Indication: URINARY TRACT INFECTION
     Dosage: 84 MG, UNK
  27. VITAMIN B12 [Concomitant]
     Active Substance: CYANOCOBALAMIN
     Indication: ENERGY INCREASED
     Dosage: UNK
  28. VITAMIN C [Concomitant]
     Active Substance: ASCORBIC ACID
     Indication: ROUTINE HEALTH MAINTENANCE
     Dosage: 2000 MG, 2X/DAY
     Route: 048
  29. ZINC [Concomitant]
     Active Substance: ZINC\ZINC CHLORIDE
     Indication: JOINT INJURY
     Dosage: UNK
     Route: 048
  30. ZEAXANTHIN [Concomitant]
     Active Substance: ZEAXANTHIN
     Indication: EYE DISORDER
     Dosage: UNK
     Route: 048
  31. TYLENOL EXTRA STRENGTH [Concomitant]
     Active Substance: ACETAMINOPHEN
     Dosage: UNK, AS NEEDED  (OFF AND ON)
     Route: 048

REACTIONS (18)
  - Blood pressure inadequately controlled [Unknown]
  - Blood cholesterol increased [Unknown]
  - Type 2 diabetes mellitus [Unknown]
  - Hyperhidrosis [Unknown]
  - Pain [Recovering/Resolving]
  - Fatigue [Unknown]
  - Skin odour abnormal [Unknown]
  - Skin burning sensation [Recovering/Resolving]
  - Insomnia [Not Recovered/Not Resolved]
  - Pruritus [Recovering/Resolving]
  - Rash pustular [Recovering/Resolving]
  - Pain of skin [Recovering/Resolving]
  - Lower limb fracture [Unknown]
  - Retinal artery occlusion [Unknown]
  - Hot flush [Not Recovered/Not Resolved]
  - Asthenia [Unknown]
  - Road traffic accident [Unknown]
  - Night sweats [Unknown]

NARRATIVE: CASE EVENT DATE: 2013
